FAERS Safety Report 7326709-8 (Version None)
Quarter: 2011Q1

REPORT INFORMATION
  Report Type: 
  Country: None (occurrence: None)
  Receive Date: 20110302
  Receipt Date: 20090825
  Transmission Date: 20110831
  Serious: No
  Sender: FDA-Public Use
  Company Number: US-PFIZER INC-2009237376

PATIENT
  Sex: Male
  Weight: 103 kg

DRUGS (3)
  1. CANCIDAS [Concomitant]
     Dosage: UNK
  2. VFEND [Suspect]
     Indication: MENINGITIS COCCIDIOIDES
     Dosage: 400 MG, 2X/DAY
     Dates: start: 20060401
  3. AMBISOME [Concomitant]
     Dosage: UNK

REACTIONS (2)
  - ARTHRITIS [None]
  - BONE MARROW OEDEMA [None]
